FAERS Safety Report 9336448 (Version 2)
Quarter: 2013Q2

REPORT INFORMATION
  Report Type: Report from Study
  Country: NL (occurrence: NL)
  Receive Date: 20130607
  Receipt Date: 20130612
  Transmission Date: 20140414
  Serious: Yes (Hospitalization, Other)
  Sender: FDA-Public Use
  Company Number: NL-GENZYME-CLOF-1002668

PATIENT
  Age: 62 Year
  Sex: Female
  Weight: 73 kg

DRUGS (8)
  1. EVOLTRA [Suspect]
     Indication: ACUTE MYELOID LEUKAEMIA
     Dosage: UNK (FIRST COURSE)
     Route: 065
  2. EVOLTRA [Suspect]
     Dosage: 18 MG, UNK, INDUCTION CYCLE II
     Route: 042
     Dates: start: 20130419
  3. CYTARABINE [Suspect]
     Indication: ACUTE MYELOID LEUKAEMIA
     Dosage: UNK (FIRST COURSE)
     Route: 065
  4. CYTARABINE [Suspect]
     Dosage: 3600 MG, UNK, INDUCTION CYCLE II
     Route: 042
     Dates: start: 20130419
  5. AMSACRINE [Suspect]
     Indication: ACUTE MYELOID LEUKAEMIA
     Dosage: UNK, FIRST COURSE
     Route: 065
  6. AMSACRINE [Suspect]
     Dosage: 220 MG, UNK, INDUCTION CYCLE II
     Route: 042
     Dates: start: 20130422
  7. POTASSIUM CHLORIDE [Concomitant]
     Indication: ELECTROLYTE IMBALANCE
     Dosage: UNK
     Route: 042
     Dates: start: 20130317
  8. MAGNESIUM SULFATE [Concomitant]
     Indication: ELECTROLYTE IMBALANCE
     Dosage: UNK
     Route: 042
     Dates: start: 20130318

REACTIONS (10)
  - Cardiac failure [Unknown]
  - Atelectasis [Unknown]
  - Spinal cord infarction [Unknown]
  - Spinal cord compression [Unknown]
  - Arterial thrombosis [Unknown]
  - Respiratory failure [Recovered/Resolved]
  - Respiratory failure [Recovered/Resolved]
  - Pneumonia [Unknown]
  - Mediastinitis [Unknown]
  - Neutropenia [Unknown]
